FAERS Safety Report 20636155 (Version 1)
Quarter: 2022Q1

REPORT INFORMATION
  Report Type: Spontaneous
  Country: None (occurrence: US)
  Receive Date: 20220325
  Receipt Date: 20220325
  Transmission Date: 20220423
  Serious: Yes (Other)
  Sender: FDA-Public Use
  Company Number: US-MLV Pharma LLC-2127106

PATIENT
  Age: 61 Year
  Sex: Male

DRUGS (4)
  1. FLUOCINOLONE ACETONIDE [Suspect]
     Active Substance: FLUOCINOLONE ACETONIDE
     Indication: Diabetic retinal oedema
     Route: 050
  2. AFLIBERCEPT [Suspect]
     Active Substance: AFLIBERCEPT
     Route: 050
  3. BEVACIZUMAB [Suspect]
     Active Substance: BEVACIZUMAB
     Route: 050
  4. TRIAMCINOLONE ACETONIDE [Concomitant]
     Active Substance: TRIAMCINOLONE ACETONIDE
     Route: 065

REACTIONS (2)
  - Corneal oedema [Recovered/Resolved]
  - Diabetic retinal oedema [Unknown]
